FAERS Safety Report 8596431-9 (Version None)
Quarter: 2012Q3

REPORT INFORMATION
  Report Type: 
  Country: None (occurrence: None)
  Receive Date: 20120815
  Receipt Date: 20120802
  Transmission Date: 20120928
  Serious: Yes (Hospitalization)
  Sender: FDA-Public Use
  Company Number: DE-FRI-1000031076

PATIENT
  Sex: Male
  Weight: 75 kg

DRUGS (4)
  1. ASPIRIN [Concomitant]
     Dosage: 100 MG
  2. MEMANTINE HCL [Suspect]
     Indication: DEMENTIA ALZHEIMER'S TYPE
     Dosage: 20 MG
     Dates: start: 20110607, end: 20111103
  3. METOPROLOL TARTRATE [Concomitant]
     Dosage: 45 MG
  4. PLAVIX [Concomitant]
     Dosage: 75 MG

REACTIONS (3)
  - HYPERTENSIVE CRISIS [None]
  - DIZZINESS [None]
  - HEADACHE [None]
